FAERS Safety Report 13794043 (Version 1)
Quarter: 2017Q3

REPORT INFORMATION
  Report Type: Spontaneous
  Country: CN (occurrence: CN)
  Receive Date: 20170726
  Receipt Date: 20170726
  Transmission Date: 20171127
  Serious: Yes (Disabling)
  Sender: FDA-Public Use
  Company Number: CN-ROCHE-1964972

PATIENT
  Age: 59 Year
  Sex: Male
  Weight: 42.5 kg

DRUGS (6)
  1. XELODA [Suspect]
     Active Substance: CAPECITABINE
     Dosage: AFTER BREAKFAST ORAL 1.0G, AFTER DINNER ORAL 1.5G
     Route: 048
     Dates: start: 20170411, end: 20170424
  2. OXALIPLATIN. [Suspect]
     Active Substance: OXALIPLATIN
     Indication: GASTRIC CANCER
     Route: 041
     Dates: start: 20170320, end: 20170320
  3. OXALIPLATIN. [Suspect]
     Active Substance: OXALIPLATIN
     Route: 041
     Dates: start: 20170411, end: 20170411
  4. XELODA [Suspect]
     Active Substance: CAPECITABINE
     Indication: GASTRIC CANCER
     Dosage: AFTER BREAKFAST ORAL 1.0G, AFTER DINNER ORAL 1.5G
     Route: 048
     Dates: start: 20170320, end: 20170403
  5. GLUCOSE [Concomitant]
     Active Substance: DEXTROSE
     Route: 042
     Dates: start: 20170320, end: 20170320
  6. GLUCOSE [Concomitant]
     Active Substance: DEXTROSE
     Route: 042
     Dates: start: 20170411, end: 20170411

REACTIONS (2)
  - Blood count abnormal [Recovering/Resolving]
  - Platelet count decreased [Recovering/Resolving]

NARRATIVE: CASE EVENT DATE: 20170407
